FAERS Safety Report 20159234 (Version 2)
Quarter: 2021Q4

REPORT INFORMATION
  Report Type: Spontaneous
  Country: US (occurrence: None)
  Receive Date: 20211208
  Receipt Date: 20211224
  Transmission Date: 20220303
  Serious: Yes (Other)
  Sender: FDA-Public Use
  Company Number: 2021A850489

PATIENT
  Age: 87 Year
  Sex: Female
  Weight: 47.6 kg

DRUGS (1)
  1. SAPHNELO [Suspect]
     Active Substance: ANIFROLUMAB-FNIA
     Indication: Systemic lupus erythematosus
     Dosage: 300 INTRAVENOUS DRIP
     Route: 041
     Dates: start: 20211124, end: 20211124

REACTIONS (4)
  - Swollen tongue [Recovered/Resolved]
  - Swelling face [Recovered/Resolved]
  - Fatigue [Recovered/Resolved]
  - Pollakiuria [Recovered/Resolved]

NARRATIVE: CASE EVENT DATE: 20211125
